FAERS Safety Report 14135549 (Version 1)
Quarter: 2017Q4

REPORT INFORMATION
  Report Type: Report from Study
  Country: US (occurrence: US)
  Receive Date: 20171027
  Receipt Date: 20171027
  Transmission Date: 20180321
  Serious: No
  Sender: FDA-Public Use
  Company Number: US-AMGEN-USASL2017114454

PATIENT
  Age: 56 Year
  Sex: Female

DRUGS (1)
  1. REPATHA [Suspect]
     Active Substance: EVOLOCUMAB
     Indication: HYPERCHOLESTEROLAEMIA
     Dosage: 140 MG, Q2WK
     Route: 065
     Dates: start: 2015

REACTIONS (8)
  - Drug administered at inappropriate site [Unknown]
  - Blood calcium increased [Recovered/Resolved]
  - Weight decreased [Unknown]
  - Fear of injection [Unknown]
  - Osteopenia [Unknown]
  - Injection site pain [Unknown]
  - Injection site bruising [Unknown]
  - Increased tendency to bruise [Unknown]

NARRATIVE: CASE EVENT DATE: 2017
